FAERS Safety Report 19575777 (Version 1)
Quarter: 2021Q3

REPORT INFORMATION
  Report Type: Spontaneous
  Country: US (occurrence: US)
  Receive Date: 20210719
  Receipt Date: 20210719
  Transmission Date: 20211014
  Serious: No
  Sender: FDA-Public Use
  Company Number: US-BAYER-2021-178535

PATIENT
  Age: 48 Year
  Sex: Female

DRUGS (1)
  1. LORATADINE. [Suspect]
     Active Substance: LORATADINE
     Indication: BONE PAIN
     Dosage: 1 DF, QD

REACTIONS (2)
  - Off label use [None]
  - Drug effective for unapproved indication [None]
